FAERS Safety Report 23751700 (Version 1)
Quarter: 2024Q2

REPORT INFORMATION
  Report Type: Spontaneous
  Country: US (occurrence: None)
  Receive Date: 20240416
  Receipt Date: 20240416
  Transmission Date: 20240716
  Serious: No
  Sender: FDA-Public Use
  Company Number: None

PATIENT
  Sex: Male

DRUGS (7)
  1. PROMACTA [Suspect]
     Active Substance: ELTROMBOPAG OLAMINE
     Indication: Chronic hepatitis C
     Route: 048
     Dates: start: 20240319
  2. AMLODIPINE BESYLATE [Concomitant]
     Active Substance: AMLODIPINE BESYLATE
  3. BENZTROPINE [Concomitant]
     Active Substance: BENZTROPINE
  4. DAILY-VITE [Concomitant]
  5. GLIPIZIDE [Concomitant]
     Active Substance: GLIPIZIDE
  6. LUMIGAN [Concomitant]
     Active Substance: BIMATOPROST
  7. METFORMIN [Concomitant]
     Active Substance: METFORMIN HYDROCHLORIDE

REACTIONS (1)
  - Death [None]
